FAERS Safety Report 26164558 (Version 1)
Quarter: 2025Q4

REPORT INFORMATION
  Report Type: Spontaneous
  Country: US (occurrence: US)
  Receive Date: 20251216
  Receipt Date: 20251216
  Transmission Date: 20260117
  Serious: No
  Sender: SANOFI AVENTIS
  Company Number: US-SA-2025SA373025

PATIENT
  Sex: Male
  Weight: 73.64 kg

DRUGS (5)
  1. DUPIXENT [Suspect]
     Active Substance: DUPILUMAB
     Indication: Dermatitis atopic
     Dosage: 300 MG, QOW
     Route: 065
  2. PARAFFIN [Concomitant]
     Active Substance: PARAFFIN
  3. AVEENO [Concomitant]
     Active Substance: DIMETHICONE\HOMOSALATE\OCTINOXATE\OCTISALATE\TITANIUM DIOXIDE
  4. TACROLIMUS [Concomitant]
     Active Substance: TACROLIMUS
  5. CELESTONE [Concomitant]
     Active Substance: BETAMETHASONE

REACTIONS (2)
  - Road traffic accident [Unknown]
  - Wrist fracture [Unknown]
